FAERS Safety Report 8956301 (Version 1)
Quarter: 2012Q4

REPORT INFORMATION
  Report Type: 
  Country: DK (occurrence: DK)
  Receive Date: 20121210
  Receipt Date: 20121210
  Transmission Date: 20130627
  Serious: Yes (Hospitalization)
  Sender: FDA-Public Use
  Company Number: DK-BAYER-2012-128305

PATIENT
  Age: 66 Year
  Sex: Female

DRUGS (5)
  1. CEFTRIAXONE [Suspect]
     Indication: VIBRIO CHOLERAE TEST POSITIVE
     Route: 042
  2. CEFTRIAXONE [Suspect]
     Indication: BRAIN ABSCESS
  3. CIPROFLOXACIN [Suspect]
     Indication: VIBRIO CHOLERAE TEST POSITIVE
     Route: 042
  4. CIPROFLOXACIN [Suspect]
     Indication: BRAIN ABSCESS
     Dosage: UNK
     Route: 042
     Dates: start: 2010, end: 2010
  5. CIPROFLOXACIN [Suspect]
     Indication: VIBRIO CHOLERAE TEST POSITIVE
     Dosage: UNK
     Route: 048
     Dates: start: 2010, end: 2010

REACTIONS (3)
  - Drug ineffective [None]
  - CNS ventriculitis [Recovering/Resolving]
  - Brain abscess [Recovering/Resolving]
